FAERS Safety Report 8484377-6 (Version None)
Quarter: 2012Q3

REPORT INFORMATION
  Report Type: 
  Country: None (occurrence: None)
  Receive Date: 20120703
  Receipt Date: 20120622
  Transmission Date: 20120928
  Serious: Yes (Other)
  Sender: FDA-Public Use
  Company Number: CA-JNJFOC-20120611909

PATIENT
  Sex: Male
  Weight: 110.8 kg

DRUGS (3)
  1. IMURAN [Concomitant]
     Route: 065
  2. REMICADE [Suspect]
     Indication: COLITIS ULCERATIVE
     Route: 042
  3. REMICADE [Suspect]
     Route: 042
     Dates: start: 20090101

REACTIONS (2)
  - RECTAL HAEMORRHAGE [None]
  - ABDOMINAL DISCOMFORT [None]
